FAERS Safety Report 8848826 (Version 1)
Quarter: 2012Q4

REPORT INFORMATION
  Report Type: Spontaneous
  Country: US (occurrence: None)
  Receive Date: 20121015
  Receipt Date: 20121015
  Transmission Date: 20130627
  Serious: Yes (Hospitalization)
  Sender: FDA-Public Use
  Company Number: NSR_00677_2012

PATIENT
  Age: 23 Year
  Sex: Male

DRUGS (2)
  1. LAMOTRIGINE [Suspect]
     Indication: PRODUCT USED FOR UNKNOWN INDICATION
  2. FLUDROCORTISONE [Suspect]
     Indication: PRODUCT USED FOR UNKNOWN INDICATION

REACTIONS (14)
  - Toxicity to various agents [None]
  - Tremor [None]
  - Foaming at mouth [None]
  - Agitation [None]
  - Restlessness [None]
  - Blood bicarbonate decreased [None]
  - Myoclonus [None]
  - Anion gap decreased [None]
  - Electrocardiogram abnormal [None]
  - Drug level increased [None]
  - Electrocardiogram QRS complex prolonged [None]
  - Blood pressure systolic increased [None]
  - Blood pressure diastolic decreased [None]
  - Blood lactic acid increased [None]
